FAERS Safety Report 5277763-9 (Version None)
Quarter: 2007Q1

REPORT INFORMATION
  Report Type: 
  Country: None (occurrence: None)
  Receive Date: 20070327
  Receipt Date: 20070315
  Transmission Date: 20070707
  Serious: Yes (Death, Life-Threatening, Hospitalization)
  Sender: FDA-Public Use
  Company Number: US-PFIZER INC-2005135314

PATIENT
  Sex: Female
  Weight: 59 kg

DRUGS (16)
  1. SU-011,248 [Suspect]
     Indication: RENAL CELL CARCINOMA STAGE UNSPECIFIED
     Route: 048
     Dates: start: 20050427, end: 20050927
  2. PEPCID [Concomitant]
     Route: 048
  3. FOSAMAX [Concomitant]
     Route: 048
  4. AREDIA [Concomitant]
     Route: 058
  5. COMPAZINE [Concomitant]
     Route: 048
  6. VICODIN [Concomitant]
     Route: 048
  7. COLACE [Concomitant]
     Route: 048
  8. LOPRESSOR [Concomitant]
     Route: 048
  9. HYCODAN [Concomitant]
     Route: 048
  10. ROXANOL [Concomitant]
     Route: 048
  11. LASIX [Concomitant]
     Route: 048
  12. ATIVAN [Concomitant]
     Route: 048
  13. NEURONTIN [Concomitant]
     Route: 048
  14. HYDROCORTISONE [Concomitant]
     Route: 048
  15. PROTONIX [Concomitant]
     Route: 048
  16. KAYEXALATE [Concomitant]
     Route: 048

REACTIONS (5)
  - ASCITES [None]
  - DISEASE PROGRESSION [None]
  - GENERALISED OEDEMA [None]
  - PLEURAL EFFUSION [None]
  - RENAL CELL CARCINOMA STAGE UNSPECIFIED [None]
